FAERS Safety Report 14702639 (Version 1)
Quarter: 2018Q2

REPORT INFORMATION
  Report Type: Report from Study
  Country: None (occurrence: US)
  Receive Date: 20180402
  Receipt Date: 20180402
  Transmission Date: 20180711
  Serious: Yes (Other)
  Sender: FDA-Public Use
  Company Number: US-ABBVIE-18P-163-2308051-00

PATIENT
  Age: 20 Year
  Sex: Female

DRUGS (1)
  1. CREON [Suspect]
     Active Substance: PANCRELIPASE AMYLASE\PANCRELIPASE LIPASE\PANCRELIPASE PROTEASE
     Indication: CYSTIC FIBROSIS
     Dosage: 5 CAPSULES WITH MEALS AND 4 CAPSULES WITH SNACKS
     Route: 048

REACTIONS (1)
  - Sinus operation [Recovering/Resolving]

NARRATIVE: CASE EVENT DATE: 201803
